FAERS Safety Report 20967970 (Version 2)
Quarter: 2022Q3

REPORT INFORMATION
  Report Type: Spontaneous
  Country: US (occurrence: US)
  Receive Date: 20220616
  Receipt Date: 20220702
  Transmission Date: 20221026
  Serious: Yes (Other)
  Sender: FDA-Public Use
  Company Number: US-TEVA-2022-US-2045652

PATIENT
  Age: 35 Year
  Sex: Female

DRUGS (3)
  1. BEXAROTENE [Suspect]
     Active Substance: BEXAROTENE
     Indication: Lymphomatoid papulosis
     Dosage: 300 MILLIGRAM DAILY;
     Route: 048
  2. TRIAMCINOLONE [Concomitant]
     Active Substance: TRIAMCINOLONE
     Indication: Lymphomatoid papulosis
     Dosage: 2 PERCENT DAILY;
     Route: 065
  3. OMEGA-3 FATTY ACIDS [Concomitant]
     Active Substance: OMEGA-3 FATTY ACIDS
     Indication: Rash papular
     Dosage: 3000 MILLIGRAM DAILY;
     Route: 065

REACTIONS (4)
  - Lichen planopilaris [Recovered/Resolved]
  - Hypothyroidism [Not Recovered/Not Resolved]
  - Alopecia scarring [Recovering/Resolving]
  - Hypertriglyceridaemia [Recovered/Resolved]
